FAERS Safety Report 4330298-X (Version None)
Quarter: 2004Q1

REPORT INFORMATION
  Report Type: 
  Country: None (occurrence: None)
  Receive Date: 20040329
  Receipt Date: 20040318
  Transmission Date: 20041129
  Serious: Yes (Other)
  Sender: FDA-Public Use
  Company Number: 2004019047

PATIENT
  Age: 8 Year
  Sex: Female

DRUGS (4)
  1. AZITHROMYCIN [Suspect]
     Indication: LOWER RESPIRATORY TRACT INFECTION
     Dosage: 250 MG (DAILY), ORAL
     Route: 048
     Dates: start: 20040306, end: 20040308
  2. BUDESONIDE (BUDESONIDE) [Concomitant]
  3. FORMOTEROL (FORMOTEROL) [Concomitant]
  4. MONTELUKAST SODIUM (MONTELUKAST SODIUM) [Concomitant]

REACTIONS (2)
  - CHEST DISCOMFORT [None]
  - WHEEZING [None]
